FAERS Safety Report 21526734 (Version 1)
Quarter: 2022Q4

REPORT INFORMATION
  Report Type: Spontaneous
  Country: US (occurrence: US)
  Receive Date: 20221031
  Receipt Date: 20221031
  Transmission Date: 20230112
  Serious: Yes (Life-Threatening, Other)
  Sender: FDA-Public Use
  Company Number: US-drreddys-LIT/USA/22/0156498

PATIENT
  Age: 30 Year
  Sex: Male

DRUGS (46)
  1. VENLAFAXINE HYDROCHLORIDE [Suspect]
     Active Substance: VENLAFAXINE HYDROCHLORIDE
     Indication: Lyme disease
  2. TESTOSTERONE [Suspect]
     Active Substance: TESTOSTERONE
     Indication: Lyme disease
  3. LIBRIUM [Suspect]
     Active Substance: CHLORDIAZEPOXIDE HYDROCHLORIDE
     Indication: Lyme disease
  4. ABILIFY [Suspect]
     Active Substance: ARIPIPRAZOLE
     Indication: Lyme disease
  5. CONCERTA [Suspect]
     Active Substance: METHYLPHENIDATE HYDROCHLORIDE
     Indication: Lyme disease
  6. CLOMIPHENE [Suspect]
     Active Substance: CLOMIPHENE
     Indication: Lyme disease
  7. RIFAMPIN [Concomitant]
     Active Substance: RIFAMPIN
     Indication: Lyme disease
  8. RIFAMPIN [Concomitant]
     Active Substance: RIFAMPIN
     Indication: Cat scratch disease
  9. DISULFIRAM [Concomitant]
     Active Substance: DISULFIRAM
     Indication: Lyme disease
  10. DISULFIRAM [Concomitant]
     Active Substance: DISULFIRAM
     Indication: Cat scratch disease
  11. DISULFIRAM [Concomitant]
     Active Substance: DISULFIRAM
  12. DOXYCYCLINE [Concomitant]
     Active Substance: DOXYCYCLINE
     Indication: Lyme disease
  13. DOXYCYCLINE [Concomitant]
     Active Substance: DOXYCYCLINE
     Indication: Cat scratch disease
  14. PYRAZINAMIDE [Concomitant]
     Active Substance: PYRAZINAMIDE
     Indication: Lyme disease
  15. PYRAZINAMIDE [Concomitant]
     Active Substance: PYRAZINAMIDE
     Indication: Cat scratch disease
  16. METHYLENE BLUE [Concomitant]
     Active Substance: METHYLENE BLUE
     Indication: Lyme disease
  17. METHYLENE BLUE [Concomitant]
     Active Substance: METHYLENE BLUE
     Indication: Cat scratch disease
  18. DAPSONE [Concomitant]
     Active Substance: DAPSONE
     Indication: Lyme disease
  19. DAPSONE [Concomitant]
     Active Substance: DAPSONE
     Indication: Cat scratch disease
  20. DAPSONE [Concomitant]
     Active Substance: DAPSONE
  21. CEFUROXIME AXETIL [Concomitant]
     Active Substance: CEFUROXIME AXETIL
     Indication: Lyme disease
  22. CEFUROXIME AXETIL [Concomitant]
     Active Substance: CEFUROXIME AXETIL
     Indication: Cat scratch disease
  23. BACTRIM [Concomitant]
     Active Substance: SULFAMETHOXAZOLE\TRIMETHOPRIM
     Indication: Lyme disease
  24. BACTRIM [Concomitant]
     Active Substance: SULFAMETHOXAZOLE\TRIMETHOPRIM
     Indication: Cat scratch disease
  25. HYDROXYCHLOROQUINE [Concomitant]
     Active Substance: HYDROXYCHLOROQUINE
     Indication: Lyme disease
  26. HYDROXYCHLOROQUINE [Concomitant]
     Active Substance: HYDROXYCHLOROQUINE
     Indication: Cat scratch disease
  27. NYSTATIN [Concomitant]
     Active Substance: NYSTATIN
     Indication: Lyme disease
  28. NYSTATIN [Concomitant]
     Active Substance: NYSTATIN
     Indication: Cat scratch disease
  29. NALTREXONE [Concomitant]
     Active Substance: NALTREXONE
     Indication: Lyme disease
  30. NALTREXONE [Concomitant]
     Active Substance: NALTREXONE
     Indication: Cat scratch disease
  31. PROBIOTICS NOS [Concomitant]
     Active Substance: PROBIOTICS NOS
     Indication: Lyme disease
  32. PROBIOTICS NOS [Concomitant]
     Active Substance: PROBIOTICS NOS
     Indication: Cat scratch disease
  33. vitamin-B6 [Concomitant]
     Indication: Lyme disease
  34. vitamin-B6 [Concomitant]
     Indication: Cat scratch disease
  35. VITAMIN B12 [Concomitant]
     Active Substance: CYANOCOBALAMIN
     Indication: Lyme disease
  36. VITAMIN B12 [Concomitant]
     Active Substance: CYANOCOBALAMIN
     Indication: Cat scratch disease
  37. FOLIC ACID [Concomitant]
     Active Substance: FOLIC ACID
     Indication: Lyme disease
  38. FOLIC ACID [Concomitant]
     Active Substance: FOLIC ACID
     Indication: Cat scratch disease
  39. monolaurin [Concomitant]
     Indication: Lyme disease
  40. monolaurin [Concomitant]
     Indication: Cat scratch disease
  41. BERBERINE [Concomitant]
     Active Substance: BERBERINE
     Indication: Lyme disease
  42. BERBERINE [Concomitant]
     Active Substance: BERBERINE
     Indication: Cat scratch disease
  43. A-Bart [Concomitant]
     Indication: Lyme disease
  44. A-Bart [Concomitant]
     Indication: Cat scratch disease
  45. A-L [Concomitant]
     Indication: Lyme disease
  46. A-L [Concomitant]
     Indication: Cat scratch disease

REACTIONS (3)
  - Drug ineffective [Recovered/Resolved]
  - Condition aggravated [Recovered/Resolved]
  - Lyme disease [Recovering/Resolving]
